FAERS Safety Report 11783200 (Version 9)
Quarter: 2016Q4

REPORT INFORMATION
  Report Type: Report from Study
  Country: CA (occurrence: CA)
  Receive Date: 20151127
  Receipt Date: 20161123
  Transmission Date: 20170206
  Serious: Yes (Hospitalization, Other)
  Sender: FDA-Public Use
  Company Number: PHHY2015CA151175

PATIENT
  Age: 72 Year
  Sex: Female

DRUGS (16)
  1. DESFERAL [Suspect]
     Active Substance: DEFEROXAMINE MESYLATE
     Indication: MYELOFIBROSIS
     Dosage: QD
     Route: 042
  2. WATER PILLS [Concomitant]
     Active Substance: UNSPECIFIED INGREDIENT
     Indication: PRODUCT USED FOR UNKNOWN INDICATION
     Route: 065
  3. JAKAVI [Suspect]
     Active Substance: RUXOLITINIB
     Dosage: 20 MG, ON MONDAY, WEDNESDAY AND FRIDAY
     Route: 048
  4. BENADRYL [Suspect]
     Active Substance: DIPHENHYDRAMINE HYDROCHLORIDE
     Indication: PERIPHERAL SWELLING
  5. RESTORALAX [Concomitant]
     Active Substance: POLYETHYLENE GLYCOL 3350
     Indication: CONSTIPATION
     Route: 065
  6. JAKAVI [Suspect]
     Active Substance: RUXOLITINIB
     Dosage: 10 MG BID TUESDAY,THURSDAY,SATURDAY, 10 MG BID ON SUNDAY, I DF PER DAY ON MONDAY, WEDENSDAY, FRIDAY
     Route: 048
  7. JAKAVI [Suspect]
     Active Substance: RUXOLITINIB
     Dosage: 5 MG, BID
     Route: 048
  8. VITAMIN D [Concomitant]
     Active Substance: CHOLECALCIFEROL
     Indication: PRODUCT USED FOR UNKNOWN INDICATION
     Route: 065
  9. JAKAVI [Suspect]
     Active Substance: RUXOLITINIB
     Dosage: 5 MG, BID TUESDAY, THURSDAY, SATURDAY AND SUNDAY
     Route: 048
  10. PREVACID [Concomitant]
     Active Substance: LANSOPRAZOLE
     Indication: PRODUCT USED FOR UNKNOWN INDICATION
     Route: 065
  11. JAKAVI [Suspect]
     Active Substance: RUXOLITINIB
     Indication: MYELOFIBROSIS
     Dosage: 15 MG, BID
     Route: 048
     Dates: start: 20150701, end: 201508
  12. JAKAVI [Suspect]
     Active Substance: RUXOLITINIB
     Dosage: 5 MG, BID
     Route: 048
  13. OMEGA 3 [Concomitant]
     Active Substance: OMEGA-3 FATTY ACIDS
     Indication: PRODUCT USED FOR UNKNOWN INDICATION
     Route: 065
  14. JAKAVI [Suspect]
     Active Substance: RUXOLITINIB
     Dosage: 5 MG, BID
     Route: 048
     Dates: start: 201509
  15. JAKAVI [Suspect]
     Active Substance: RUXOLITINIB
     Dosage: 15 MG, BID
     Route: 048
  16. EXJADE [Suspect]
     Active Substance: DEFERASIROX
     Indication: MYELOFIBROSIS
     Dosage: 3500 MG, QD
     Route: 048
     Dates: start: 20151113, end: 20151210

REACTIONS (43)
  - Blood pressure decreased [Unknown]
  - Palpitations [Unknown]
  - Swelling [Unknown]
  - Constipation [Not Recovered/Not Resolved]
  - Haemorrhoids [Recovering/Resolving]
  - Pain in extremity [Unknown]
  - Amnesia [Unknown]
  - Weight increased [Not Recovered/Not Resolved]
  - Anaemia [Unknown]
  - Heart rate decreased [Unknown]
  - Aphasia [Unknown]
  - Glossodynia [Unknown]
  - Splenomegaly [Unknown]
  - Drug ineffective [Unknown]
  - Liver disorder [Unknown]
  - Pruritus [Not Recovered/Not Resolved]
  - Haemorrhoidal haemorrhage [Recovering/Resolving]
  - Rash [Unknown]
  - Muscle spasms [Unknown]
  - Abdominal pain upper [Unknown]
  - Abdominal discomfort [Unknown]
  - Nausea [Unknown]
  - Flatulence [Unknown]
  - Fatigue [Unknown]
  - Tongue injury [Unknown]
  - White blood cell count decreased [Not Recovered/Not Resolved]
  - Diarrhoea [Unknown]
  - Stomatitis [Unknown]
  - Headache [Unknown]
  - Urticaria [Unknown]
  - Peripheral swelling [Unknown]
  - Decreased immune responsiveness [Unknown]
  - Stress [Unknown]
  - Aphthous ulcer [Unknown]
  - Serum ferritin increased [Unknown]
  - Dizziness [Unknown]
  - Off label use [Unknown]
  - Lactose intolerance [Unknown]
  - Dry skin [Unknown]
  - Scab [Unknown]
  - Laceration [Unknown]
  - Confusional state [Recovering/Resolving]
  - Contusion [Not Recovered/Not Resolved]

NARRATIVE: CASE EVENT DATE: 20160405
